FAERS Safety Report 6863033-1 (Version None)
Quarter: 2010Q3

REPORT INFORMATION
  Report Type: 
  Country: None (occurrence: None)
  Receive Date: 20100721
  Receipt Date: 20100712
  Transmission Date: 20110219
  Serious: Yes (Hospitalization)
  Sender: FDA-Public Use
  Company Number: US-GENZYME-CLOF-1001078

PATIENT
  Age: 66 Year
  Sex: Male

DRUGS (5)
  1. CLOFARABINE [Suspect]
     Indication: ACUTE LEUKAEMIA
     Dosage: 25 MG, UNK
     Route: 048
  2. CLOFARABINE [Suspect]
     Dosage: 25 MG, UNK
     Route: 048
     Dates: start: 20100628, end: 20100702
  3. CALCIUM ACETATE [Concomitant]
     Indication: PRODUCT USED FOR UNKNOWN INDICATION
     Dosage: 667 MG, BID
     Route: 048
     Dates: start: 20100702
  4. ALLOPURINOL [Concomitant]
     Indication: PRODUCT USED FOR UNKNOWN INDICATION
     Dosage: 300 MG, QD
     Route: 048
     Dates: start: 20100630
  5. COMPAZINE [Concomitant]
     Indication: PROPHYLAXIS OF NAUSEA AND VOMITING
     Dosage: 10 MG/DAY, PRN
     Dates: start: 20100628

REACTIONS (3)
  - HAEMOGLOBIN DECREASED [None]
  - HAEMORRHAGE URINARY TRACT [None]
  - PLATELET COUNT DECREASED [None]
